FAERS Safety Report 5519487-6 (Version None)
Quarter: 2007Q4

REPORT INFORMATION
  Report Type: 
  Country: None (occurrence: None)
  Receive Date: 20071116
  Receipt Date: 20071109
  Transmission Date: 20080405
  Serious: Yes (Hospitalization)
  Sender: FDA-Public Use
  Company Number: DE-GENENTECH-251112

PATIENT
  Sex: Female
  Weight: 35 kg

DRUGS (4)
  1. NUTROPIN AQ [Suspect]
     Indication: CENTRAL NERVOUS SYSTEM NEOPLASM
     Dosage: 0.8 MG, QD
     Route: 058
     Dates: start: 20070606
  2. NUTROPIN AQ [Suspect]
     Indication: HYPOPITUITARISM
  3. HYDROCORTISONE [Concomitant]
     Indication: DRUG USE FOR UNKNOWN INDICATION
     Dosage: 10 MG, QD
     Route: 048
     Dates: start: 20070410
  4. L-THYROXINE [Concomitant]
     Indication: DRUG USE FOR UNKNOWN INDICATION
     Dosage: 50 A?G, QAM
     Route: 048
     Dates: start: 20051201

REACTIONS (1)
  - MEDULLOBLASTOMA [None]
